FAERS Safety Report 22047266 (Version 2)
Quarter: 2023Q1

REPORT INFORMATION
  Report Type: Report from Study
  Country: CO (occurrence: CO)
  Receive Date: 20230301
  Receipt Date: 20230313
  Transmission Date: 20230418
  Serious: Yes (Hospitalization)
  Sender: FDA-Public Use
  Company Number: CO-JNJFOC-20230256152

PATIENT
  Age: 68 Year
  Sex: Male
  Weight: 82 kg

DRUGS (7)
  1. SIMPONI [Suspect]
     Active Substance: GOLIMUMAB
     Indication: Rheumatoid arthritis
     Dosage: LAST APPLICATION ON 05-MAR-2023
     Route: 058
     Dates: start: 20140502
  2. FOLIC ACID [Concomitant]
     Active Substance: FOLIC ACID
  3. PREDNISOLONE [Concomitant]
     Active Substance: PREDNISOLONE
  4. ACETAMINOPHEN [Concomitant]
     Active Substance: ACETAMINOPHEN
  5. INSULIN NOS [Concomitant]
     Active Substance: INSULIN NOS
  6. METHOTREXATE [Concomitant]
     Active Substance: METHOTREXATE
  7. CALCITRIOL [Concomitant]
     Active Substance: CALCITRIOL

REACTIONS (1)
  - Pneumonia [Recovered/Resolved]

NARRATIVE: CASE EVENT DATE: 20230217
